FAERS Safety Report 20002679 (Version 1)
Quarter: 2021Q4

REPORT INFORMATION
  Report Type: Spontaneous
  Country: US (occurrence: US)
  Receive Date: 20211027
  Receipt Date: 20211027
  Transmission Date: 20220303
  Serious: Yes (Other)
  Sender: FDA-Public Use
  Company Number: US-MYLANLABS-2021M1074148

PATIENT
  Age: 67 Year
  Sex: Male
  Weight: 90.7 kg

DRUGS (4)
  1. HYDROCHLOROTHIAZIDE\VALSARTAN [Suspect]
     Active Substance: HYDROCHLOROTHIAZIDE\VALSARTAN
     Indication: Hypertension
     Dosage: UNK, 320/25 MILLIGRAM
     Dates: start: 20121223, end: 20160430
  2. JANUMET [Concomitant]
     Active Substance: METFORMIN HYDROCHLORIDE\SITAGLIPTIN PHOSPHATE
     Indication: Type 2 diabetes mellitus
     Dosage: 500 MILLIGRAM, BID
     Dates: start: 2009
  3. LATANOPROST [Concomitant]
     Active Substance: LATANOPROST
     Indication: Glaucoma
     Dosage: 1 DROP, ONE DROP PER
     Dates: start: 2005
  4. TYLENOL [Concomitant]
     Active Substance: ACETAMINOPHEN
     Indication: Pain
     Dosage: UNK, PRN
     Dates: start: 2009

REACTIONS (1)
  - Gastric cancer [Unknown]

NARRATIVE: CASE EVENT DATE: 20170502
